FAERS Safety Report 7936012-0 (Version None)
Quarter: 2011Q4

REPORT INFORMATION
  Report Type: 
  Country: None (occurrence: None)
  Receive Date: 20111121
  Receipt Date: 20111109
  Transmission Date: 20120403
  Serious: Yes (Other)
  Sender: FDA-Public Use
  Company Number: 1000025334

PATIENT
  Age: 48 Year
  Sex: Female

DRUGS (16)
  1. OMNARIS (CICLESONIDE) [Concomitant]
  2. GABAPENTIN [Concomitant]
  3. OXYCONTIN [Concomitant]
  4. ATENOLOL [Concomitant]
  5. NEXIUM [Concomitant]
  6. NORCO (HYDROCODONE, ACETAMINOPHEN) [Concomitant]
  7. ALPRAZOLAM [Concomitant]
  8. VITAMIN B12 [Concomitant]
  9. TORSEMIDE [Concomitant]
  10. SAVELLA [Suspect]
     Indication: FIBROMYALGIA
     Dosage: 50 MG (50 MG, 1 IN 1 D), ORAL
     Route: 048
     Dates: start: 20111101, end: 20111104
  11. PRISTIQ [Concomitant]
  12. METOLAZONE [Concomitant]
  13. NORTRIPTAN (NORTRIPTAN) [Concomitant]
  14. SINGULAIR (MONTELUKAST SODIUIM) [Concomitant]
  15. PREMPRO (PROVELLA-14) (PROVELLA-14) [Concomitant]
  16. POTASSIUM CHLORIDE [Concomitant]

REACTIONS (2)
  - VISION BLURRED [None]
  - VISUAL ACUITY REDUCED [None]
